FAERS Safety Report 24418740 (Version 1)
Quarter: 2024Q4

REPORT INFORMATION
  Report Type: Spontaneous
  Country: TR (occurrence: TR)
  Receive Date: 20241009
  Receipt Date: 20241009
  Transmission Date: 20250114
  Serious: Yes (Life-Threatening, Hospitalization)
  Sender: JOHNSON AND JOHNSON
  Company Number: TR-JNJFOC-20241013823

PATIENT
  Age: 30 Year
  Sex: Male
  Weight: 95 kg

DRUGS (2)
  1. RISPERDAL [Suspect]
     Active Substance: RISPERIDONE
     Indication: Bipolar disorder
     Route: 065
  2. LITHIUM CARBONATE [Suspect]
     Active Substance: LITHIUM CARBONATE
     Indication: Bipolar disorder
     Route: 048

REACTIONS (2)
  - Completed suicide [Recovered/Resolved]
  - Semen volume decreased [Recovered/Resolved]

NARRATIVE: CASE EVENT DATE: 20210101
